FAERS Safety Report 9542007 (Version 1)
Quarter: 2013Q3

REPORT INFORMATION
  Report Type: Spontaneous
  Country: JP (occurrence: None)
  Receive Date: 20130918
  Receipt Date: 20130918
  Transmission Date: 20140515
  Serious: Yes (Other)
  Sender: FDA-Public Use
  Company Number: FK201304255

PATIENT
  Age: 41 Year
  Sex: Male

DRUGS (6)
  1. IRINOTECAN [Suspect]
     Indication: TESTICULAR GERM CELL CANCER
  2. CISPLATIN [Suspect]
     Indication: TESTICULAR GERM CELL CANCER
  3. ETOPOSIDE [Suspect]
     Indication: TESTICULAR GERM CELL CANCER
  4. PACLITAXEL [Suspect]
     Indication: TESTICULAR GERM CELL CANCER
  5. IFOSFAMIDE [Suspect]
     Indication: TESTICULAR GERM CELL CANCER
  6. NEDAPLATIN [Suspect]
     Indication: TESTICULAR GERM CELL CANCER

REACTIONS (6)
  - Neuropathy peripheral [None]
  - Testicular germ cell cancer [None]
  - Recurrent cancer [None]
  - Neurotoxicity [None]
  - Metastases to spine [None]
  - Metastases to thorax [None]
